FAERS Safety Report 7354596-0 (Version None)
Quarter: 2011Q1

REPORT INFORMATION
  Report Type: 
  Country: None (occurrence: None)
  Receive Date: 20110316
  Receipt Date: 20100927
  Transmission Date: 20110831
  Serious: Yes (Other)
  Sender: FDA-Public Use
  Company Number: US-BAYER-201016010NA

PATIENT
  Sex: Female
  Weight: 104.31 kg

DRUGS (2)
  1. YASMIN [Suspect]
     Route: 048
     Dates: start: 20040101, end: 20040601
  2. YASMIN [Suspect]
     Dosage: UNK
     Dates: start: 20040226, end: 20040514

REACTIONS (1)
  - DEEP VEIN THROMBOSIS [None]
